FAERS Safety Report 5327023-2 (Version None)
Quarter: 2007Q2

REPORT INFORMATION
  Report Type: 
  Country: None (occurrence: None)
  Receive Date: 20070517
  Receipt Date: 20070507
  Transmission Date: 20071010
  Serious: Yes (Other)
  Sender: FDA-Public Use
  Company Number: JP-JNJFOC-20070501632

PATIENT
  Age: 31 Year
  Sex: Female

DRUGS (1)
  1. REMICADE [Suspect]
     Indication: RHEUMATOID ARTHRITIS
     Dosage: 7 INFUSIONS ON UNKNOWN DATES
     Route: 042

REACTIONS (2)
  - SYSTEMIC LUPUS ERYTHEMATOSUS [None]
  - URTICARIA [None]
